FAERS Safety Report 17940382 (Version 1)
Quarter: 2020Q2

REPORT INFORMATION
  Report Type: Spontaneous
  Country: FR (occurrence: FR)
  Receive Date: 20200625
  Receipt Date: 20200625
  Transmission Date: 20200714
  Serious: Yes (Other)
  Sender: FDA-Public Use
  Company Number: FR-SA-2020SA158203

PATIENT

DRUGS (1)
  1. APROVEL [Suspect]
     Active Substance: IRBESARTAN
     Indication: HYPERTENSION
     Dosage: UNK
     Route: 065

REACTIONS (5)
  - Glucose tolerance impaired [Not Recovered/Not Resolved]
  - Neuropathy peripheral [Unknown]
  - Blood cholesterol abnormal [Not Recovered/Not Resolved]
  - Hepatotoxicity [Unknown]
  - Breast cancer [Unknown]
